FAERS Safety Report 6496812-3 (Version None)
Quarter: 2009Q4

REPORT INFORMATION
  Report Type: 
  Country: None (occurrence: None)
  Receive Date: 20091125
  Receipt Date: 20090406
  Transmission Date: 20100525
  Serious: Yes (Hospitalization)
  Sender: FDA-Public Use
  Company Number: 2009BH005588

PATIENT
  Age: 51 Year
  Sex: Male

DRUGS (9)
  1. DIANEAL [Suspect]
     Indication: PERITONEAL DIALYSIS
     Dosage: 10 L; IP
     Route: 033
     Dates: start: 20070101
  2. PHOSLO [Concomitant]
  3. FLAXSEED OIL [Concomitant]
  4. LOVAZA [Concomitant]
  5. SYNTHROID [Concomitant]
  6. NU-IRON [Concomitant]
  7. COLACE [Concomitant]
  8. LIPITOR [Concomitant]
  9. LACTULOSE [Concomitant]

REACTIONS (4)
  - DECREASED APPETITE [None]
  - LETHARGY [None]
  - PERITONEAL DIALYSIS COMPLICATION [None]
  - PERITONITIS BACTERIAL [None]
